FAERS Safety Report 9318946 (Version 1)
Quarter: 2013Q2

REPORT INFORMATION
  Report Type: Spontaneous
  Country: CA (occurrence: CA)
  Receive Date: 20130530
  Receipt Date: 20130530
  Transmission Date: 20140414
  Serious: Yes (Death)
  Sender: FDA-Public Use
  Company Number: CA-CELGENEUS-028-21880-13053898

PATIENT
  Sex: Female

DRUGS (3)
  1. REVLIMID [Suspect]
     Indication: PLASMA CELL MYELOMA
     Route: 048
     Dates: start: 20090824
  2. REVLIMID [Suspect]
     Route: 048
     Dates: start: 20100504, end: 2010
  3. REVLIMID [Suspect]
     Route: 048
     Dates: start: 20101019

REACTIONS (1)
  - Death [Fatal]
